FAERS Safety Report 10301583 (Version 1)
Quarter: 2014Q3

REPORT INFORMATION
  Report Type: Spontaneous
  Country: US (occurrence: None)
  Receive Date: 20140710
  Receipt Date: 20140710
  Transmission Date: 20150326
  Serious: Yes (Hospitalization)
  Sender: FDA-Public Use
  Company Number: None

PATIENT
  Age: 60 Year
  Sex: Female
  Weight: 71.2 kg

DRUGS (3)
  1. CYCLOPHOSPHAMIDE. [Suspect]
     Active Substance: CYCLOPHOSPHAMIDE
     Dosage: TOTAL CUMMULATIVE DOSE = 4540 MG.
  2. TAXOL [Suspect]
     Active Substance: PACLITAXEL
     Dosage: TOTAL CUMMULATIVE DOSE = 975 MG
  3. DOXORUBICIN HYDROCHLORIDE. [Suspect]
     Active Substance: DOXORUBICIN HYDROCHLORIDE
     Dosage: TOTAL CUMMULATIVE DOSE = 452 MG

REACTIONS (2)
  - Acute myeloid leukaemia [None]
  - Neuropathy peripheral [None]

NARRATIVE: CASE EVENT DATE: 20140707
